FAERS Safety Report 4780263-3 (Version None)
Quarter: 2005Q3

REPORT INFORMATION
  Report Type: 
  Country: None (occurrence: None)
  Receive Date: 20050914
  Receipt Date: 20040729
  Transmission Date: 20060218
  Serious: Yes (Other)
  Sender: FDA-Public Use
  Company Number: 163-20785-04080035

PATIENT
  Age: 56 Year
  Sex: Female

DRUGS (6)
  1. THALOMID [Suspect]
     Indication: BRAIN NEOPLASM
     Dosage: 100 MG, DAILY, ORAL
     Route: 048
     Dates: start: 20040331
  2. TEMODAR [Suspect]
     Indication: BRAIN NEOPLASM
     Dosage: 150 MG, DAILY, ORAL
     Route: 048
     Dates: start: 20040713
  3. OXYCONTIN [Concomitant]
  4. PROTONIX [Concomitant]
  5. DILANTIN [Concomitant]
  6. DECADRON [Concomitant]

REACTIONS (2)
  - HAEMATOCRIT DECREASED [None]
  - HAEMOGLOBIN DECREASED [None]
